FAERS Safety Report 7585417-9 (Version None)
Quarter: 2011Q2

REPORT INFORMATION
  Report Type: 
  Country: None (occurrence: None)
  Receive Date: 20110624
  Receipt Date: 20110614
  Transmission Date: 20111010
  Serious: Yes (Death, Hospitalization)
  Sender: FDA-Public Use
  Company Number: KV201000224

PATIENT
  Age: 84 Year
  Sex: Female
  Weight: 69.4 kg

DRUGS (18)
  1. MAGNESIUM OXIDE (MAGNESIUM OXIDE) [Concomitant]
  2. FOLIC ACID [Concomitant]
  3. ASPIRIN [Concomitant]
  4. LOPRESSOR [Concomitant]
  5. POTASSIUM CHLORIDE [Concomitant]
  6. CALCIUM W/VITAMIN D   /00188401/ (CALCIUM, ERGOCALCIFEROL) [Concomitant]
  7. ARICEPT   /01318902/ (DONEPEXIL HYDROCHLORIDE) [Concomitant]
  8. ZANTAC   /00550802/ (RANITIDINE HYDROCHLORIDE) [Concomitant]
  9. ADVAIR (FLUTICASONE PROPIONATE, SALMETERAL XINAFOATE) [Concomitant]
  10. ZOCOR [Concomitant]
  11. LYRICA [Concomitant]
  12. FUROSEMIDE [Concomitant]
  13. ISOSORBIDE MONONITRATE [Suspect]
     Indication: PRODUCT USED FOR UNKNOWN INDICATION
     Dosage: 15 MG, QD, ORAL
     Route: 048
     Dates: start: 20080522, end: 20080921
  14. COUMADIN [Concomitant]
  15. SPIRIVA [Concomitant]
  16. DIGOXIN [Concomitant]
  17. SYNTHROID [Concomitant]
  18. SINGULAIR [Concomitant]

REACTIONS (7)
  - ISCHAEMIC CARDIOMYOPATHY [None]
  - CARDIAC FAILURE CONGESTIVE [None]
  - CARDIO-RESPIRATORY ARREST [None]
  - ATRIAL FIBRILLATION [None]
  - OVERDOSE [None]
  - ARTERIOSCLEROSIS CORONARY ARTERY [None]
  - CONDITION AGGRAVATED [None]
